FAERS Safety Report 19913352 (Version 1)
Quarter: 2021Q4

REPORT INFORMATION
  Report Type: Spontaneous
  Country: CA (occurrence: CA)
  Receive Date: 20211004
  Receipt Date: 20211004
  Transmission Date: 20220303
  Serious: Yes (Other)
  Sender: FDA-Public Use
  Company Number: CA-TEVA-2021-CA-1959933

PATIENT
  Age: 76 Year
  Sex: Male
  Weight: 63.9 kg

DRUGS (3)
  1. HALOPERIDOL [Suspect]
     Active Substance: HALOPERIDOL
     Indication: Schizophrenia
     Dosage: 8 MILLIGRAM DAILY;
     Route: 048
  2. HALOPERIDOL [Suspect]
     Active Substance: HALOPERIDOL
     Indication: Anxiety
  3. APO-AMOXI CAP 500MG [Concomitant]

REACTIONS (11)
  - Dehydration [Recovered/Resolved]
  - Depressed level of consciousness [Recovered/Resolved]
  - Epistaxis [Recovered/Resolved]
  - Product used for unknown indication [Recovered/Resolved]
  - Respiratory depression [Recovered/Resolved]
  - Somnolence [Recovered/Resolved]
  - Medication error [Recovered/Resolved]
  - Overdose [Recovered/Resolved]
  - Product communication issue [Recovered/Resolved]
  - Product expiration date issue [Recovered/Resolved]
  - Product prescribing error [Recovered/Resolved]
